FAERS Safety Report 7136385-5 (Version None)
Quarter: 2010Q4

REPORT INFORMATION
  Report Type: 
  Country: None (occurrence: None)
  Receive Date: 20101206
  Receipt Date: 20101129
  Transmission Date: 20110411
  Serious: No
  Sender: FDA-Public Use
  Company Number: US-BIOGENIDEC-2010BI042048

PATIENT
  Age: 39 Year
  Sex: Female

DRUGS (3)
  1. TYSABRI [Suspect]
     Indication: MULTIPLE SCLEROSIS
     Route: 042
     Dates: start: 20100114
  2. AVONEX [Concomitant]
     Indication: MULTIPLE SCLEROSIS
     Route: 030
     Dates: start: 20080601
  3. AVONEX [Concomitant]
     Route: 030
     Dates: start: 19981201, end: 20000201

REACTIONS (2)
  - PYREXIA [None]
  - SINUSITIS [None]
